FAERS Safety Report 6733776-9 (Version None)
Quarter: 2010Q2

REPORT INFORMATION
  Report Type: 
  Country: None (occurrence: None)
  Receive Date: 20100520
  Receipt Date: 20100511
  Transmission Date: 20101027
  Serious: Yes (Other)
  Sender: FDA-Public Use
  Company Number: US-PFIZER INC-2010060059

PATIENT
  Sex: Male
  Weight: 151.93 kg

DRUGS (8)
  1. DETROL LA [Suspect]
     Indication: HYPERTONIC BLADDER
     Dosage: 4 MG, 2X/DAY
     Route: 048
     Dates: start: 20050101
  2. LIPITOR [Suspect]
     Indication: BLOOD CHOLESTEROL INCREASED
     Dosage: 10 MG, 1X/DAY
     Route: 048
     Dates: start: 20080101, end: 20100401
  3. GLIPIZIDE [Concomitant]
     Dosage: UNK, DAILY
  4. NIFEDIPINE [Concomitant]
     Dosage: 60 MG, UNK
  5. DIAZEPAM [Concomitant]
     Dosage: UNK
  6. HYDROCODONE [Concomitant]
     Dosage: 500 MG, UNK
  7. SULINDAC [Concomitant]
     Dosage: 200 MG, UNK
  8. METFORMIN [Concomitant]
     Dosage: 500 MG, UNK

REACTIONS (5)
  - BLOOD CHOLESTEROL INCREASED [None]
  - CATARACT [None]
  - CEREBROVASCULAR ACCIDENT [None]
  - DIABETES MELLITUS [None]
  - LIVER INJURY [None]
